FAERS Safety Report 16494034 (Version 1)
Quarter: 2019Q2

REPORT INFORMATION
  Report Type: Spontaneous
  Country: KP (occurrence: KR)
  Receive Date: 20190628
  Receipt Date: 20190628
  Transmission Date: 20190711
  Serious: Yes (Other)
  Sender: FDA-Public Use
  Company Number: PHHY2019KR147871

PATIENT
  Age: 65 Year
  Sex: Male

DRUGS (2)
  1. PAZOPANIB [Suspect]
     Active Substance: PAZOPANIB
     Indication: RENAL CELL CARCINOMA
     Dosage: UNK
     Route: 065
  2. TEMSIROLIMUS. [Suspect]
     Active Substance: TEMSIROLIMUS
     Indication: RENAL CELL CARCINOMA
     Dosage: UNK
     Route: 065

REACTIONS (2)
  - Azotaemia [Unknown]
  - Metastases to lymph nodes [Unknown]
